FAERS Safety Report 4754260-8 (Version None)
Quarter: 2005Q3

REPORT INFORMATION
  Report Type: 
  Country: None (occurrence: None)
  Receive Date: 20050829
  Receipt Date: 20050704
  Transmission Date: 20060218
  Serious: Yes (Death)
  Sender: FDA-Public Use
  Company Number: KR-JNJFOC-20050700811

PATIENT
  Sex: Female
  Weight: 51 kg

DRUGS (5)
  1. SPORANOX [Suspect]
     Route: 042
  2. SPORANOX [Suspect]
     Route: 042
  3. MEROPEN [Concomitant]
     Route: 042
     Dates: start: 20041105, end: 20041115
  4. VANCOCIN HCL [Concomitant]
     Route: 042
     Dates: start: 20041105, end: 20041115
  5. FUNGIZONE [Concomitant]
     Route: 042
     Dates: start: 20041112, end: 20041113

REACTIONS (1)
  - SEPTIC SHOCK [None]
